FAERS Safety Report 16566604 (Version 1)
Quarter: 2019Q3

REPORT INFORMATION
  Report Type: Spontaneous
  Country: CN (occurrence: CN)
  Receive Date: 20190712
  Receipt Date: 20190712
  Transmission Date: 20191004
  Serious: Yes (Hospitalization, Other)
  Sender: FDA-Public Use
  Company Number: CN-PFIZER INC-2019292287

PATIENT
  Age: 64 Year
  Sex: Female
  Weight: 62 kg

DRUGS (4)
  1. CEFOXITIN SODIUM [Suspect]
     Active Substance: CEFOXITIN SODIUM
     Dosage: 2 G, 2X/DAY
     Route: 041
     Dates: start: 20190627, end: 20190701
  2. INTRALIPID [Concomitant]
     Active Substance: EGG PHOSPHOLIPIDS\GLYCERIN\SOYBEAN OIL
     Indication: ENDOMETRIAL CANCER
     Dosage: 250 ML, 1X/DAY
     Route: 041
     Dates: start: 20190627, end: 20190701
  3. CEFOXITIN SODIUM [Suspect]
     Active Substance: CEFOXITIN SODIUM
     Indication: ENDOMETRIAL CANCER
     Dosage: 2 G, 2X/DAY
     Route: 041
     Dates: start: 20190626, end: 20190626
  4. LIPITOR [Suspect]
     Active Substance: ATORVASTATIN CALCIUM
     Indication: ENDOMETRIAL CANCER
     Dosage: 20 MG, 1X/DAY
     Route: 048
     Dates: start: 20190624, end: 20190625

REACTIONS (3)
  - Product use in unapproved indication [Unknown]
  - Liver injury [Recovering/Resolving]
  - Off label use [Unknown]

NARRATIVE: CASE EVENT DATE: 20190624
